FAERS Safety Report 21563498 (Version 1)
Quarter: 2022Q4

REPORT INFORMATION
  Report Type: Spontaneous
  Country: JP (occurrence: JP)
  Receive Date: 20221108
  Receipt Date: 20221108
  Transmission Date: 20230113
  Serious: Yes (Other)
  Sender: FDA-Public Use
  Company Number: JP-SUN PHARMACEUTICAL INDUSTRIES LTD-2022RR-362167

PATIENT
  Age: 52 Year
  Sex: Female

DRUGS (2)
  1. TEMOZOLOMIDE [Suspect]
     Active Substance: TEMOZOLOMIDE
     Indication: Glioblastoma
     Dosage: 240 MILLIGRAM, DAILY, FOR 5 DAYS EVERY 4 WEEKS
     Route: 065
  2. TEMOZOLOMIDE [Suspect]
     Active Substance: TEMOZOLOMIDE
     Dosage: 40 MILLIGRAM, DAILY, FOR 5 DAYS EVERY 4 WEEKS
     Route: 065

REACTIONS (1)
  - Dermatitis psoriasiform [Recovered/Resolved]
